FAERS Safety Report 8882129 (Version 1)
Quarter: 2012Q4

REPORT INFORMATION
  Report Type: 
  Country: US (occurrence: US)
  Receive Date: 20121102
  Receipt Date: 20121102
  Transmission Date: 20130627
  Serious: Yes (Hospitalization, Disabling, Other)
  Sender: FDA-Public Use
  Company Number: US-TEVA-368121USA

PATIENT
  Age: 66 Year
  Sex: Female

DRUGS (2)
  1. ALENDRONIC ACID [Suspect]
     Dates: start: 200812, end: 20101129
  2. FOSAMAX [Suspect]
     Dates: start: 1990

REACTIONS (4)
  - Toxicity to various agents [Unknown]
  - Femur fracture [Unknown]
  - Bone disorder [Unknown]
  - Low turnover osteopathy [Unknown]
